FAERS Safety Report 9860137 (Version 1)
Quarter: 2014Q1

REPORT INFORMATION
  Report Type: Report from Study
  Country: DE (occurrence: DE)
  Receive Date: 20140201
  Receipt Date: 20140201
  Transmission Date: 20141002
  Serious: Yes (Hospitalization)
  Sender: FDA-Public Use
  Company Number: DE-ROCHE-1340892

PATIENT
  Age: 67 Year
  Sex: Female

DRUGS (6)
  1. RITUXIMAB [Suspect]
     Indication: RHEUMATOID ARTHRITIS
     Route: 065
     Dates: start: 20070220
  2. RITUXIMAB [Suspect]
     Route: 065
     Dates: start: 20090120
  3. RITUXIMAB [Suspect]
     Route: 065
     Dates: start: 20110308
  4. RITUXIMAB [Suspect]
     Route: 065
     Dates: start: 20111020
  5. RITUXIMAB [Suspect]
     Route: 065
     Dates: start: 20120711
  6. HYDROXYCHLOROQUINE [Suspect]
     Indication: RHEUMATOID ARTHRITIS
     Route: 065
     Dates: start: 20070305

REACTIONS (1)
  - Spinal fracture [Unknown]
